FAERS Safety Report 5016492-3 (Version None)
Quarter: 2006Q2

REPORT INFORMATION
  Report Type: 
  Country: None (occurrence: None)
  Receive Date: 20060602
  Receipt Date: 20060523
  Transmission Date: 20061013
  Serious: Yes (Life-Threatening, Hospitalization)
  Sender: FDA-Public Use
  Company Number: US-NOVOPROD-253572

PATIENT
  Age: 68 Year
  Sex: Male

DRUGS (4)
  1. PRANDIN [Suspect]
     Indication: DIABETES MELLITUS NON-INSULIN-DEPENDENT
     Dosage: 1 MG, TID
     Dates: start: 20060517, end: 20060521
  2. LISINOPRIL [Suspect]
     Indication: HYPERTENSION
     Dosage: UNKNOWN
     Route: 048
  3. GLUCOPHAGE                         /00082701/ [Concomitant]
     Indication: DIABETES MELLITUS NON-INSULIN-DEPENDENT
  4. LOVASTATIN [Concomitant]
     Indication: BLOOD CHOLESTEROL INCREASED

REACTIONS (1)
  - ANGIONEUROTIC OEDEMA [None]
